FAERS Safety Report 10355481 (Version 2)
Quarter: 2014Q3

REPORT INFORMATION
  Report Type: Spontaneous
  Country: BR (occurrence: BR)
  Receive Date: 20140731
  Receipt Date: 20140808
  Transmission Date: 20150326
  Serious: Yes (Other)
  Sender: FDA-Public Use
  Company Number: BR-PFIZER INC-2014212302

PATIENT
  Age: 45 Year
  Sex: Female

DRUGS (1)
  1. DEPO-PROVERA [Suspect]
     Active Substance: MEDROXYPROGESTERONE ACETATE
     Indication: MENSTRUAL CYCLE MANAGEMENT
     Dosage: 150 MG, EVERY 3 MONTHS
     Dates: start: 201401, end: 201407

REACTIONS (5)
  - Disease progression [Unknown]
  - Ovarian enlargement [Unknown]
  - Uterine leiomyoma [Unknown]
  - Coagulopathy [Not Recovered/Not Resolved]
  - Off label use [Unknown]

NARRATIVE: CASE EVENT DATE: 2014
